FAERS Safety Report 8282280-8 (Version None)
Quarter: 2012Q2

REPORT INFORMATION
  Report Type: 
  Country: None (occurrence: None)
  Receive Date: 20120413
  Receipt Date: 20120404
  Transmission Date: 20120825
  Serious: Yes (Hospitalization)
  Sender: FDA-Public Use
  Company Number: ES-JNJFOC-20110200995

PATIENT
  Age: 40 Year
  Sex: Female
  Weight: 52.4 kg

DRUGS (8)
  1. REMICADE [Suspect]
     Route: 042
     Dates: start: 20110112
  2. OMEPRAZOLE [Concomitant]
     Indication: GASTROINTESTINAL DISORDER THERAPY
     Route: 048
     Dates: start: 20110104
  3. COTRIM [Concomitant]
     Indication: PROPHYLAXIS
     Route: 048
     Dates: start: 20110111
  4. CALCIUM WITH VITAMIN D [Concomitant]
     Indication: PROPHYLAXIS
     Route: 048
     Dates: start: 20101228
  5. ALPRAZOLAM [Concomitant]
     Indication: ANXIETY
     Route: 048
     Dates: start: 20110103
  6. PREDNISONE [Concomitant]
     Indication: COLITIS ULCERATIVE
     Dosage: TAPERING DOSE
     Route: 048
     Dates: start: 20110117
  7. REMICADE [Suspect]
     Indication: COLITIS ULCERATIVE
     Route: 042
     Dates: start: 20110126
  8. AZATHIOPRINE [Concomitant]
     Indication: COLITIS ULCERATIVE
     Route: 048
     Dates: start: 20110111

REACTIONS (5)
  - SEPTIC SHOCK [None]
  - ESCHERICHIA INFECTION [None]
  - THROMBOPHLEBITIS SEPTIC [None]
  - JUGULAR VEIN THROMBOSIS [None]
  - COLITIS ULCERATIVE [None]
